FAERS Safety Report 7793801-3 (Version None)
Quarter: 2011Q4

REPORT INFORMATION
  Report Type: 
  Country: None (occurrence: None)
  Receive Date: 20111003
  Receipt Date: 20110928
  Transmission Date: 20120403
  Serious: Yes (Hospitalization)
  Sender: FDA-Public Use
  Company Number: PHHY2010US77076

PATIENT
  Sex: Female

DRUGS (1)
  1. EXJADE [Suspect]
     Dosage: 1500 MG, QD
     Route: 048

REACTIONS (6)
  - PYREXIA [None]
  - NASOPHARYNGITIS [None]
  - NAUSEA [None]
  - COUGH [None]
  - SICKLE CELL ANAEMIA WITH CRISIS [None]
  - ABDOMINAL PAIN [None]
